FAERS Safety Report 22150824 (Version 2)
Quarter: 2023Q2

REPORT INFORMATION
  Report Type: Spontaneous
  Country: US (occurrence: US)
  Receive Date: 20230329
  Receipt Date: 20230503
  Transmission Date: 20230722
  Serious: No
  Sender: FDA-Public Use
  Company Number: US-SA-SAC20230327001033

PATIENT
  Age: 29 Year
  Sex: Male

DRUGS (3)
  1. CEREZYME [Suspect]
     Active Substance: IMIGLUCERASE
     Indication: Gaucher^s disease
     Dosage: 200 ML
     Route: 065
     Dates: start: 202111
  2. CEREZYME [Suspect]
     Active Substance: IMIGLUCERASE
     Dosage: 4400 IU, QOW
     Route: 042
     Dates: start: 20161025
  3. SODIUM CHLORIDE [Concomitant]
     Active Substance: SODIUM CHLORIDE

REACTIONS (2)
  - Lethargy [Unknown]
  - Fatigue [Unknown]
